FAERS Safety Report 10572028 (Version 1)
Quarter: 2014Q4

REPORT INFORMATION
  Report Type: Spontaneous
  Country: JP (occurrence: JP)
  Receive Date: 20141107
  Receipt Date: 20141107
  Transmission Date: 20150529
  Serious: Yes (Other)
  Sender: FDA-Public Use
  Company Number: JP-ASTRAZENECA-2014SE83009

PATIENT
  Age: 55 Year
  Sex: Male
  Weight: 78 kg

DRUGS (7)
  1. GLIMEPIRIDE. [Concomitant]
     Active Substance: GLIMEPIRIDE
     Route: 048
     Dates: end: 20140814
  2. METGLUCO [Concomitant]
     Active Substance: METFORMIN HYDROCHLORIDE
     Route: 048
     Dates: end: 20140814
  3. NEXIUM [Suspect]
     Active Substance: ESOMEPRAZOLE MAGNESIUM
     Route: 048
     Dates: end: 20140820
  4. NATRIX [Concomitant]
     Active Substance: INDAPAMIDE
     Route: 048
  5. DAPAGLIFLOZIN PROPYLENE GLYCOLATE HYDRATE [Suspect]
     Active Substance: DAPAGLIFLOZIN PROPANEDIOL
     Indication: DIABETES MELLITUS
     Route: 048
     Dates: end: 20140814
  6. MICAMLO [Suspect]
     Active Substance: AMLODIPINE BESYLATE\TELMISARTAN
     Route: 048
     Dates: end: 20140820
  7. EQUA [Suspect]
     Active Substance: VILDAGLIPTIN
     Route: 048
     Dates: end: 20140814

REACTIONS (2)
  - Interstitial lung disease [Recovering/Resolving]
  - Diabetes mellitus inadequate control [None]

NARRATIVE: CASE EVENT DATE: 20140710
